FAERS Safety Report 5748698-X (Version None)
Quarter: 2008Q2

REPORT INFORMATION
  Report Type: 
  Country: None (occurrence: None)
  Receive Date: 20080521
  Receipt Date: 20080512
  Transmission Date: 20081010
  Serious: Yes (Death)
  Sender: FDA-Public Use
  Company Number: GXKR2008GB04397

PATIENT
  Age: 56 Year
  Sex: Male
  Weight: 94.3 kg

DRUGS (11)
  1. ITRACONAZOLE [Suspect]
     Indication: FUNGAL INFECTION
     Dosage: 200 MG, QD, ORAL
     Route: 048
     Dates: start: 20080416, end: 20080423
  2. ALLOPURINOL [Concomitant]
  3. AMBISOME [Concomitant]
  4. LANSOPRAZOLE [Concomitant]
  5. MEROPENEM (MEROPENEM) [Concomitant]
  6. ACETAMINOPHEN [Concomitant]
  7. PREDNISOLONE [Concomitant]
  8. TEICOPLANIN (TEICOPLANIN) [Concomitant]
  9. TRAMADOL HCL [Concomitant]
  10. VORICONAZOLE (VORICONAZOLE) [Concomitant]
  11. ZOPICLONE (ZOPICLONE) [Concomitant]

REACTIONS (1)
  - DEATH [None]
